FAERS Safety Report 7934449-7 (Version None)
Quarter: 2011Q4

REPORT INFORMATION
  Report Type: 
  Country: None (occurrence: None)
  Receive Date: 20111122
  Receipt Date: 20111114
  Transmission Date: 20120403
  Serious: Yes (Hospitalization)
  Sender: FDA-Public Use
  Company Number: MX-GLAXOSMITHKLINE-A0954131A

PATIENT
  Age: 30 Year
  Sex: Female

DRUGS (2)
  1. PAROXETINE HCL [Suspect]
     Indication: DEPRESSION
     Dosage: 20MGD PER DAY
     Route: 048
     Dates: start: 20110901
  2. UNKNOWN [Concomitant]

REACTIONS (5)
  - INCISION SITE ABSCESS [None]
  - HAEMORRHOID OPERATION [None]
  - ABDOMINAL ABSCESS [None]
  - BACTERIAL INFECTION [None]
  - DEPRESSION [None]
